FAERS Safety Report 7278987-1 (Version None)
Quarter: 2011Q1

REPORT INFORMATION
  Report Type: 
  Country: None (occurrence: None)
  Receive Date: 20110207
  Receipt Date: 20110125
  Transmission Date: 20110831
  Serious: Yes (Death)
  Sender: FDA-Public Use
  Company Number: US-TYCO HEALTHCARE/MALLINCKRODT-T201100165

PATIENT
  Age: 21 Year
  Sex: Male

DRUGS (3)
  1. NAPROXEN [Suspect]
     Dosage: UNK
  2. METHOCARBAMOL [Suspect]
     Dosage: UNK
  3. METHADOSE [Suspect]
     Dosage: UNK

REACTIONS (2)
  - CARDIO-RESPIRATORY ARREST [None]
  - COMPLETED SUICIDE [None]
